FAERS Safety Report 5334211-8 (Version None)
Quarter: 2007Q2

REPORT INFORMATION
  Report Type: 
  Country: None (occurrence: None)
  Receive Date: 20070516
  Receipt Date: 20070504
  Transmission Date: 20071010
  Serious: Yes (Other)
  Sender: FDA-Public Use
  Company Number: AEISR200700114

PATIENT
  Age: 43 Year
  Sex: Male

DRUGS (3)
  1. IMMUNE GLOBULIN INTRAVENOUS (HUMAN) [Suspect]
     Indication: PLATELET COUNT DECREASED
     Dosage: 400 MG/KG; IV
     Route: 042
  2. BLOCKER [Concomitant]
  3. ORGANIC NITRATES [Concomitant]

REACTIONS (4)
  - CONDITION AGGRAVATED [None]
  - LEFT VENTRICULAR DYSFUNCTION [None]
  - MYOCARDIAL INFARCTION [None]
  - THROMBOCYTOPENIA [None]
